FAERS Safety Report 9708193 (Version 1)
Quarter: 2013Q4

REPORT INFORMATION
  Report Type: Spontaneous
  Country: US (occurrence: US)
  Receive Date: 20131125
  Receipt Date: 20131125
  Transmission Date: 20140711
  Serious: No
  Sender: FDA-Public Use
  Company Number: US-PFIZER INC-2013336078

PATIENT
  Age: 60 Year
  Sex: Female
  Weight: 60.8 kg

DRUGS (8)
  1. EFFEXOR [Suspect]
     Dosage: 150 MG, DAILY
     Dates: end: 201311
  2. HUMIRA [Concomitant]
     Indication: PSORIATIC ARTHROPATHY
     Dosage: UNK, EVERY TWO WEEKS
  3. HUMIRA [Concomitant]
     Indication: INTERVERTEBRAL DISC DEGENERATION
  4. METHOTREXATE [Concomitant]
     Indication: PSORIATIC ARTHROPATHY
     Dosage: 10 MG, WEEKLY
  5. METHOTREXATE [Concomitant]
     Indication: INTERVERTEBRAL DISC DEGENERATION
  6. PLAQUENIL [Concomitant]
     Indication: PSORIATIC ARTHROPATHY
     Dosage: UNK
  7. PLAQUENIL [Concomitant]
     Indication: INTERVERTEBRAL DISC DEGENERATION
  8. LYRICA [Concomitant]
     Indication: FIBROMYALGIA
     Dosage: 100 MG, 2X/DAY

REACTIONS (4)
  - Drug withdrawal syndrome [Not Recovered/Not Resolved]
  - Panic attack [Not Recovered/Not Resolved]
  - Nausea [Not Recovered/Not Resolved]
  - Dysgeusia [Not Recovered/Not Resolved]
